FAERS Safety Report 15134228 (Version 2)
Quarter: 2018Q3

REPORT INFORMATION
  Report Type: Spontaneous
  Country: KR (occurrence: KR)
  Receive Date: 20180712
  Receipt Date: 20180717
  Transmission Date: 20181010
  Serious: Yes (Life-Threatening, Other)
  Sender: FDA-Public Use
  Company Number: KR-PFIZER INC-2018279967

PATIENT
  Age: 40 Year
  Sex: Male
  Weight: 140 kg

DRUGS (6)
  1. PROPOFOL. [Suspect]
     Active Substance: PROPOFOL
     Indication: INDUCTION OF ANAESTHESIA
     Dosage: UNK
     Route: 065
  2. LABETALOL [Concomitant]
     Active Substance: LABETALOL\LABETALOL HYDROCHLORIDE
     Dosage: 120 MG, CYCLIC (ONCE EVERY HOUR)
     Route: 065
  3. NICARDIPINE [Concomitant]
     Active Substance: NICARDIPINE
     Dosage: 2.5 MG, CYCLIC (ONCE EVERY HOUR)
     Route: 065
  4. GLYCOPYRROLATE /00196201/ [Concomitant]
     Active Substance: GLYCOPYRRONIUM
     Dosage: 0.2 MG, UNK
     Route: 030
  5. ROCURONIUM BROMIDE. [Suspect]
     Active Substance: ROCURONIUM BROMIDE
     Indication: ANAESTHESIA
     Dosage: 50 MG, UNK
     Route: 065
  6. REMIFENTANIL [Suspect]
     Active Substance: REMIFENTANIL
     Indication: ANAESTHESIA
     Dosage: UNK
     Route: 065

REACTIONS (5)
  - Hypoxia [Recovered/Resolved]
  - Respiratory acidosis [Recovered/Resolved]
  - Hypotension [Recovered/Resolved]
  - Status asthmaticus [Recovered/Resolved]
  - Bradycardia [Recovered/Resolved]
